FAERS Safety Report 9326295 (Version 2)
Quarter: 2013Q3

REPORT INFORMATION
  Report Type: Spontaneous
  Country: US (occurrence: US)
  Receive Date: 20130604
  Receipt Date: 20130701
  Transmission Date: 20140515
  Serious: No
  Sender: FDA-Public Use
  Company Number: US-009507513-1305USA012082

PATIENT
  Age: 71 Year
  Sex: Female

DRUGS (10)
  1. ASMANEX TWISTHALER [Suspect]
     Indication: ASTHMA
     Dosage: 110 MICROGRAM, ONE INHALATION, ONCE DAILY
     Route: 055
     Dates: start: 20130513
  2. BOTOX [Suspect]
  3. SEREVENT [Concomitant]
  4. PROAIR (ALBUTEROL SULFATE) [Concomitant]
  5. ARTANE [Concomitant]
  6. SINGULAIR [Concomitant]
  7. DIGOXIN [Concomitant]
  8. CARDIZEM [Concomitant]
  9. WARFARIN [Concomitant]
  10. CRESTOR [Concomitant]

REACTIONS (4)
  - Dysphonia [Not Recovered/Not Resolved]
  - Pharyngeal hypoaesthesia [Unknown]
  - Underdose [Unknown]
  - Drug prescribing error [Unknown]
